FAERS Safety Report 13565699 (Version 1)
Quarter: 2017Q2

REPORT INFORMATION
  Report Type: Spontaneous
  Country: TW (occurrence: TW)
  Receive Date: 20170519
  Receipt Date: 20170519
  Transmission Date: 20170830
  Serious: Yes (Other)
  Sender: FDA-Public Use
  Company Number: TW-AMGEN-TWNSP2017076508

PATIENT
  Age: 48 Year
  Sex: Male

DRUGS (2)
  1. ARCOXIA [Concomitant]
     Active Substance: ETORICOXIB
     Dosage: 60 MG, QD
  2. ENBREL [Suspect]
     Active Substance: ETANERCEPT
     Indication: ANKYLOSING SPONDYLITIS
     Dosage: 25 MG, QW
     Route: 058
     Dates: start: 20060118

REACTIONS (2)
  - Product use issue [Unknown]
  - Iritis [Recovering/Resolving]

NARRATIVE: CASE EVENT DATE: 201704
